FAERS Safety Report 18442379 (Version 1)
Quarter: 2020Q4

REPORT INFORMATION
  Report Type: Spontaneous
  Country: GB (occurrence: GB)
  Receive Date: 20201029
  Receipt Date: 20201029
  Transmission Date: 20210114
  Serious: Yes (Other)
  Sender: FDA-Public Use
  Company Number: GB-MYLANLABS-2020M1090064

PATIENT
  Age: 79 Year
  Sex: Female

DRUGS (5)
  1. AMILORIDE W/FUROSEMIDE [Concomitant]
     Active Substance: AMILORIDE\FUROSEMIDE
     Dosage: UNK
  2. ATENOLOL. [Concomitant]
     Active Substance: ATENOLOL
     Dosage: UNK
  3. CIPROFLOXACIN. [Suspect]
     Active Substance: CIPROFLOXACIN
     Indication: LOWER RESPIRATORY TRACT INFECTION
     Dosage: UNK UNK, QD DAILY
  4. DIGOXIN. [Concomitant]
     Active Substance: DIGOXIN
     Dosage: UNK
  5. NITRAZEPAM [Concomitant]
     Active Substance: NITRAZEPAM
     Dosage: UNK

REACTIONS (2)
  - Haemorrhagic vasculitis [Recovered/Resolved]
  - Vasculitic rash [Recovered/Resolved]
